FAERS Safety Report 24198715 (Version 1)
Quarter: 2024Q3

REPORT INFORMATION
  Report Type: Spontaneous
  Country: CN (occurrence: CN)
  Receive Date: 20240812
  Receipt Date: 20240812
  Transmission Date: 20241017
  Serious: Yes (Other)
  Sender: ROCHE
  Company Number: CN-ROCHE-10000048970

PATIENT
  Age: 47 Year
  Sex: Female

DRUGS (15)
  1. PERTUZUMAB [Suspect]
     Active Substance: PERTUZUMAB
     Indication: Invasive ductal breast carcinoma
     Route: 065
     Dates: start: 202111
  2. ADO-TRASTUZUMAB EMTANSINE [Suspect]
     Active Substance: ADO-TRASTUZUMAB EMTANSINE
     Indication: Invasive ductal breast carcinoma
     Route: 065
     Dates: start: 202305
  3. TRASTUZUMAB [Suspect]
     Active Substance: TRASTUZUMAB
     Indication: Invasive ductal breast carcinoma
     Route: 058
     Dates: start: 202111
  4. EPIRUBICIN [Concomitant]
     Active Substance: EPIRUBICIN
     Indication: Invasive ductal breast carcinoma
  5. CYCLOPHOSPHAMIDE [Concomitant]
     Active Substance: CYCLOPHOSPHAMIDE
     Indication: Invasive ductal breast carcinoma
     Route: 048
  6. DOCETAXEL [Concomitant]
     Active Substance: DOCETAXEL\DOCETAXEL ANHYDROUS
     Indication: Invasive ductal breast carcinoma
  7. TRASTUZUMAB [Concomitant]
     Active Substance: TRASTUZUMAB
     Indication: Invasive ductal breast carcinoma
  8. PYROTINIB [Concomitant]
     Active Substance: PYROTINIB
     Indication: Invasive ductal breast carcinoma
  9. GOSERELIN [Concomitant]
     Active Substance: GOSERELIN
     Indication: Invasive ductal breast carcinoma
  10. LETROZOLE [Concomitant]
     Active Substance: LETROZOLE
     Indication: Invasive ductal breast carcinoma
  11. TOREMIFENE [Concomitant]
     Active Substance: TOREMIFENE
     Indication: Invasive ductal breast carcinoma
  12. CAPECITABINE [Concomitant]
     Active Substance: CAPECITABINE
     Indication: Invasive ductal breast carcinoma
  13. TRASTUZUMAB DERUXTECAN [Concomitant]
     Active Substance: TRASTUZUMAB DERUXTECAN
     Indication: Invasive ductal breast carcinoma
  14. FULVESTRANT [Concomitant]
     Active Substance: FULVESTRANT
     Indication: Invasive ductal breast carcinoma
  15. ABEMACICLIB [Concomitant]
     Active Substance: ABEMACICLIB
     Indication: Invasive ductal breast carcinoma

REACTIONS (4)
  - Disease progression [Unknown]
  - Drug ineffective [Unknown]
  - Platelet count decreased [Recovering/Resolving]
  - Neutrophil count decreased [Unknown]
